FAERS Safety Report 9260890 (Version 1)
Quarter: 2013Q2

REPORT INFORMATION
  Report Type: Spontaneous
  Country: US (occurrence: US)
  Receive Date: 20130429
  Receipt Date: 20130429
  Transmission Date: 20140414
  Serious: No
  Sender: FDA-Public Use
  Company Number: US-AMGEN-USASP2012033000

PATIENT
  Age: 55 Year
  Sex: Female

DRUGS (8)
  1. SENSIPAR [Suspect]
     Indication: PRODUCT USED FOR UNKNOWN INDICATION
     Dosage: 30 MG, QD
     Route: 048
     Dates: start: 201205, end: 201205
  2. LOVAZA [Concomitant]
  3. ALLOPURINOL [Concomitant]
  4. METOPROLOL [Concomitant]
  5. HYDROCODONE/APAP [Concomitant]
  6. DULCOLAX                           /00064401/ [Concomitant]
  7. MIRALAX                            /00754501/ [Concomitant]
  8. DOCUSATE [Concomitant]

REACTIONS (2)
  - Headache [Recovered/Resolved]
  - Blood pressure increased [Recovered/Resolved]
